FAERS Safety Report 7384076-8 (Version None)
Quarter: 2011Q1

REPORT INFORMATION
  Report Type: 
  Country: None (occurrence: None)
  Receive Date: 20110330
  Receipt Date: 20110324
  Transmission Date: 20110831
  Serious: Yes (Hospitalization)
  Sender: FDA-Public Use
  Company Number: A0773165A

PATIENT
  Age: 65 Year
  Sex: Female
  Weight: 84.1 kg

DRUGS (10)
  1. LANTUS [Concomitant]
  2. LASIX [Concomitant]
  3. ADVAIR DISKUS 100/50 [Concomitant]
  4. ZOCOR [Concomitant]
  5. GLUCOPHAGE [Concomitant]
  6. INSULIN [Concomitant]
  7. VYTORIN [Concomitant]
  8. LISINOPRIL [Concomitant]
  9. AVANDIA [Suspect]
     Indication: DIABETES MELLITUS
     Dosage: 8MG PER DAY
     Route: 048
     Dates: start: 20011221, end: 20070530
  10. METFORMIN [Concomitant]

REACTIONS (5)
  - TRANSIENT ISCHAEMIC ATTACK [None]
  - CARDIAC FAILURE CONGESTIVE [None]
  - CORONARY ARTERY DISEASE [None]
  - CEREBROVASCULAR ACCIDENT [None]
  - MYOCARDIAL INFARCTION [None]
